FAERS Safety Report 6841943-9 (Version None)
Quarter: 2010Q3

REPORT INFORMATION
  Report Type: 
  Country: None (occurrence: None)
  Receive Date: 20100714
  Receipt Date: 20070821
  Transmission Date: 20110219
  Serious: No
  Sender: FDA-Public Use
  Company Number: US-PFIZER INC-2007059543

PATIENT
  Sex: Female
  Weight: 71.7 kg

DRUGS (8)
  1. CHANTIX [Suspect]
     Indication: SMOKING CESSATION THERAPY
     Route: 048
     Dates: start: 20070705, end: 20070720
  2. LEVOTHYROXINE SODIUM [Concomitant]
     Indication: THYROID DISORDER
  3. ACETYLSALICYLIC ACID [Concomitant]
  4. ACIPHEX [Concomitant]
     Indication: DYSPEPSIA
  5. METOPROLOL [Concomitant]
     Indication: BLOOD PRESSURE INCREASED
  6. LEXAPRO [Concomitant]
  7. PREVACID [Concomitant]
  8. LORAZEPAM [Concomitant]

REACTIONS (4)
  - BALANCE DISORDER [None]
  - DIZZINESS [None]
  - HYPERHIDROSIS [None]
  - NAUSEA [None]
